FAERS Safety Report 20487959 (Version 4)
Quarter: 2022Q2

REPORT INFORMATION
  Report Type: Spontaneous
  Country: ES (occurrence: ES)
  Receive Date: 20220218
  Receipt Date: 20220418
  Transmission Date: 20220721
  Serious: Yes (Other)
  Sender: FDA-Public Use
  Company Number: ES-SA-SAC20220204000492

PATIENT
  Age: 72 Year
  Sex: Male

DRUGS (8)
  1. METFORMIN HYDROCHLORIDE [Suspect]
     Active Substance: METFORMIN HYDROCHLORIDE
     Indication: Type 2 diabetes mellitus
     Route: 048
  2. INSULIN GLARGINE [Suspect]
     Active Substance: INSULIN GLARGINE
     Indication: Type 2 diabetes mellitus
     Route: 065
     Dates: start: 2021
  3. INSULIN GLARGINE [Suspect]
     Active Substance: INSULIN GLARGINE
     Route: 058
     Dates: start: 2021
  4. INSULIN HUMAN [Suspect]
     Active Substance: INSULIN HUMAN
     Indication: Type 2 diabetes mellitus
     Dosage: DOSE: 11-11-10
     Route: 058
  5. INSULIN HUMAN [Suspect]
     Active Substance: INSULIN HUMAN
     Dosage: DOSE:8-8-8
     Route: 065
  6. FIASP [Concomitant]
     Active Substance: INSULIN ASPART
     Indication: Hypoglycaemia
     Dosage: AT NIGHT
     Route: 065
  7. FIASP [Concomitant]
     Active Substance: INSULIN ASPART
     Dosage: AT NIGHT
     Route: 065
  8. CARBOHYDRATES [Concomitant]
     Active Substance: CARBOHYDRATES
     Indication: Hypoglycaemia

REACTIONS (8)
  - Hyperglycaemia [Recovering/Resolving]
  - Somnolence [Recovering/Resolving]
  - Hypoglycaemia [Recovering/Resolving]
  - Hypoglycaemia [Recovered/Resolved]
  - Condition aggravated [Recovering/Resolving]
  - Hyperglycaemia [Unknown]
  - Hypoglycaemia [Recovered/Resolved with Sequelae]
  - Product selection error [Unknown]
